FAERS Safety Report 11617657 (Version 1)
Quarter: 2015Q4

REPORT INFORMATION
  Report Type: Spontaneous
  Country: BW (occurrence: US)
  Receive Date: 20151009
  Receipt Date: 20151009
  Transmission Date: 20160304
  Serious: No
  Sender: FDA-Public Use
  Company Number: BW-GLAXOSMITHKLINE-BW2015GSK139453

PATIENT
  Age: 36 Year
  Sex: Female

DRUGS (1)
  1. ATOVAQUONE + PROGUANIL HYDROCHLORIDE TABLET [Suspect]
     Active Substance: ATOVAQUONE\PROGUANIL HYDROCHLORIDE
     Indication: MALARIA PROPHYLAXIS
     Dosage: UNK
     Dates: start: 20150917

REACTIONS (2)
  - Abnormal dreams [Recovered/Resolved]
  - Hallucination [Recovered/Resolved]

NARRATIVE: CASE EVENT DATE: 20150921
